FAERS Safety Report 9559981 (Version 1)
Quarter: 2013Q3

REPORT INFORMATION
  Report Type: Spontaneous
  Country: CA (occurrence: None)
  Receive Date: 20130925
  Receipt Date: 20130925
  Transmission Date: 20140515
  Serious: Yes (Other)
  Sender: FDA-Public Use
  Company Number: 2013AP008156

PATIENT
  Age: 72 Year
  Sex: Female

DRUGS (1)
  1. CLOPIDOGREL (CLOPIDOGREL) [Suspect]
     Route: 048

REACTIONS (4)
  - White blood cell count increased [None]
  - Platelet count decreased [None]
  - Haemoglobin decreased [None]
  - Leukaemia [None]
